FAERS Safety Report 6621099-8 (Version None)
Quarter: 2010Q1

REPORT INFORMATION
  Report Type: 
  Country: None (occurrence: None)
  Receive Date: 20100309
  Receipt Date: 20100304
  Transmission Date: 20100710
  Serious: Yes (Disabling, Other)
  Sender: FDA-Public Use
  Company Number: D0065858A

PATIENT
  Sex: Male
  Weight: 75 kg

DRUGS (2)
  1. ATMADISC [Suspect]
     Indication: ASTHMA
     Dosage: 300MCG TWICE PER DAY
     Route: 055
     Dates: start: 20030128, end: 20090215
  2. BERODUAL [Suspect]
     Route: 055
     Dates: start: 20090101

REACTIONS (24)
  - ARTHRALGIA [None]
  - ARTHRITIS [None]
  - CHILLS [None]
  - ERECTILE DYSFUNCTION [None]
  - EXERCISE TOLERANCE DECREASED [None]
  - FATIGUE [None]
  - GENERAL PHYSICAL HEALTH DETERIORATION [None]
  - HEART RATE IRREGULAR [None]
  - HYPERHIDROSIS [None]
  - INFLUENZA LIKE ILLNESS [None]
  - INSOMNIA [None]
  - LETHARGY [None]
  - LISTLESS [None]
  - MALAISE [None]
  - MOBILITY DECREASED [None]
  - MUSCLE SPASMS [None]
  - MUSCLE TWITCHING [None]
  - PRURITUS [None]
  - PYREXIA [None]
  - RASH [None]
  - RENAL PAIN [None]
  - RESTLESSNESS [None]
  - THROAT IRRITATION [None]
  - WHEEZING [None]
